FAERS Safety Report 5989407-9 (Version None)
Quarter: 2008Q4

REPORT INFORMATION
  Report Type: 
  Country: None (occurrence: None)
  Receive Date: 20081208
  Receipt Date: 20081124
  Transmission Date: 20090506
  Serious: Yes (Death, Hospitalization)
  Sender: FDA-Public Use
  Company Number: GXKR2008FR11185

PATIENT
  Age: 53 Year
  Sex: Male

DRUGS (3)
  1. CYCLOSPORINE [Suspect]
     Indication: IMMUNOSUPPRESSANT DRUG THERAPY
     Dosage: 140 MG
  2. MYCOPHENOLATE MOFETIL [Suspect]
     Indication: IMMUNOSUPPRESSANT DRUG THERAPY
     Dosage: 1.5 G
  3. THYMOGLOBULIN [Concomitant]

REACTIONS (13)
  - ASPERGILLOSIS [None]
  - BACTERAEMIA [None]
  - BRAIN ABSCESS [None]
  - BRONCHITIS BACTERIAL [None]
  - CARDIAC TAMPONADE [None]
  - CARDIAC VALVE VEGETATION [None]
  - DEPRESSED LEVEL OF CONSCIOUSNESS [None]
  - EMBOLISM [None]
  - ENDOPHTHALMITIS [None]
  - FUNGAL ENDOCARDITIS [None]
  - MULTI-ORGAN FAILURE [None]
  - PERICARDIAL EFFUSION [None]
  - PNEUMONIA BACTERIAL [None]
